FAERS Safety Report 7401938-3 (Version None)
Quarter: 2011Q2

REPORT INFORMATION
  Report Type: 
  Country: None (occurrence: None)
  Receive Date: 20110408
  Receipt Date: 20110401
  Transmission Date: 20111010
  Serious: Yes (Other)
  Sender: FDA-Public Use
  Company Number: US-PFIZER INC-2009262553

PATIENT
  Sex: Female
  Weight: 59 kg

DRUGS (10)
  1. CYCRIN [Suspect]
     Indication: MENOPAUSAL SYMPTOMS
  2. CYCRIN [Suspect]
     Indication: HORMONE REPLACEMENT THERAPY
     Dosage: UNK
     Dates: start: 19960101, end: 20030321
  3. PROVERA [Suspect]
     Indication: HORMONE REPLACEMENT THERAPY
     Dosage: UNK
     Route: 048
     Dates: start: 19970901, end: 19980101
  4. PROVERA [Suspect]
     Indication: MENOPAUSAL SYMPTOMS
  5. FLONASE [Concomitant]
     Indication: SINUS DISORDER
     Dosage: UNK
     Dates: start: 20000101
  6. MEDROXYPROGESTERONE ACETATE [Suspect]
     Indication: HORMONE REPLACEMENT THERAPY
     Dosage: UNK
     Route: 048
     Dates: start: 19970901, end: 20020601
  7. AMBIEN [Concomitant]
     Indication: INSOMNIA
     Dosage: UNK
     Dates: start: 19970101
  8. PREMARIN [Suspect]
     Indication: HORMONE REPLACEMENT THERAPY
     Dosage: UNK
     Route: 048
     Dates: start: 19970801, end: 20030301
  9. BECONASE [Concomitant]
     Indication: SINUS DISORDER
     Dosage: UNK
     Dates: start: 19960101
  10. PROMETRIUM [Suspect]
     Indication: HORMONE REPLACEMENT THERAPY
     Dosage: UNK
     Dates: start: 20020601, end: 20030301

REACTIONS (1)
  - BREAST CANCER [None]
